FAERS Safety Report 20958819 (Version 2)
Quarter: 2022Q3

REPORT INFORMATION
  Report Type: Spontaneous
  Country: US (occurrence: US)
  Receive Date: 20220614
  Receipt Date: 20220712
  Transmission Date: 20221027
  Serious: Yes (Life-Threatening, Hospitalization, Disabling, Other)
  Sender: FDA-Public Use
  Company Number: US-PFIZER INC-202200820673

PATIENT
  Age: 70 Year
  Sex: Male
  Weight: 140.61 kg

DRUGS (2)
  1. VANCOMYCIN HYDROCHLORIDE [Suspect]
     Active Substance: VANCOMYCIN HYDROCHLORIDE
     Indication: Joint injury
     Dosage: UNK (LAST DOSE WAS 1.75GRAMS Q12)
     Route: 042
     Dates: start: 20220523
  2. VANCOMYCIN HYDROCHLORIDE [Suspect]
     Active Substance: VANCOMYCIN HYDROCHLORIDE
     Dosage: UNK (LAST DOSE WAS 1.75GRAMS Q12)
     Route: 042
     Dates: start: 20220523

REACTIONS (3)
  - Blood creatinine increased [Unknown]
  - Drug level above therapeutic [Unknown]
  - Off label use [Unknown]
